FAERS Safety Report 17585050 (Version 1)
Quarter: 2020Q1

REPORT INFORMATION
  Report Type: Spontaneous
  Country: US (occurrence: US)
  Receive Date: 20200324
  Receipt Date: 20200324
  Transmission Date: 20200409
  Serious: No
  Sender: FDA-Public Use
  Company Number: None

PATIENT
  Age: 75 Year
  Sex: Male

DRUGS (19)
  1. VITAMIN B12 [Concomitant]
     Active Substance: CYANOCOBALAMIN
  2. NOVOLOG [Concomitant]
     Active Substance: INSULIN ASPART
  3. VITAMIN C [Concomitant]
     Active Substance: ASCORBIC ACID
  4. CAPECITABINE 500 MG [Suspect]
     Active Substance: CAPECITABINE
     Indication: CHOLANGIOCARCINOMA
     Route: 048
     Dates: start: 20191127
  5. MELATONIN [Concomitant]
     Active Substance: MELATONIN
  6. PEPCID [Concomitant]
     Active Substance: FAMOTIDINE
  7. TORSEMIDE. [Concomitant]
     Active Substance: TORSEMIDE
  8. TOUJEO [Concomitant]
     Active Substance: INSULIN GLARGINE
  9. TYLENOL [Concomitant]
     Active Substance: ACETAMINOPHEN
  10. LOSARTAN. [Concomitant]
     Active Substance: LOSARTAN
  11. COREG [Concomitant]
     Active Substance: CARVEDILOL
  12. VITAMIN D3 [Concomitant]
     Active Substance: CHOLECALCIFEROL
  13. PRISTIQ EXTENDED-RELEASE [Concomitant]
     Active Substance: DESVENLAFAXINE SUCCINATE
  14. VANCOMYCIN [Concomitant]
     Active Substance: VANCOMYCIN
  15. AMLODIPINE [Concomitant]
     Active Substance: AMLODIPINE BESYLATE
  16. TRAZODONE [Concomitant]
     Active Substance: TRAZODONE HYDROCHLORIDE
  17. IRON [Concomitant]
     Active Substance: IRON
  18. METHYLPHENID [Concomitant]
     Active Substance: METHYLPHENIDATE
  19. SINGULAIR [Concomitant]
     Active Substance: MONTELUKAST SODIUM

REACTIONS (4)
  - Nausea [None]
  - Fatigue [None]
  - Abdominal pain [None]
  - Constipation [None]

NARRATIVE: CASE EVENT DATE: 202002
